FAERS Safety Report 9798489 (Version 1)
Quarter: 2013Q4

REPORT INFORMATION
  Report Type: Spontaneous
  Country: FR (occurrence: None)
  Receive Date: 20131230
  Receipt Date: 20131230
  Transmission Date: 20140711
  Serious: Yes (Hospitalization)
  Sender: FDA-Public Use
  Company Number: 2013HINLIT0303

PATIENT
  Age: 84 Year
  Sex: Female

DRUGS (5)
  1. LEVETIRACETAM [Suspect]
     Indication: GRAND MAL CONVULSION
  2. SODIUM VALPROATE [Suspect]
     Indication: GRAND MAL CONVULSION
  3. LAMOTRIGINE (LAMOTRIGINE) [Concomitant]
  4. LOPRAZOLAM (LOPRAZOLAM) [Concomitant]
  5. FUROSEMIDE (FUROSEMIDE) [Concomitant]

REACTIONS (9)
  - Toxic encephalopathy [None]
  - White matter lesion [None]
  - Drug ineffective [None]
  - Metabolic encephalopathy [None]
  - Convulsion [None]
  - Condition aggravated [None]
  - Confusional state [None]
  - Memory impairment [None]
  - Speech disorder [None]
